FAERS Safety Report 9105754 (Version 1)
Quarter: 2013Q1

REPORT INFORMATION
  Report Type: Spontaneous
  Country: US (occurrence: US)
  Receive Date: 20130220
  Receipt Date: 20130220
  Transmission Date: 20140127
  Serious: No
  Sender: FDA-Public Use
  Company Number: US-PFIZER INC-2013063329

PATIENT
  Sex: Male

DRUGS (2)
  1. ADVIL PM [Suspect]
     Indication: INSOMNIA
     Dosage: UNK, 1X/DAY
     Dates: start: 201302
  2. ADVIL PM [Suspect]
     Indication: NECK PAIN

REACTIONS (1)
  - Drug ineffective [Unknown]
